FAERS Safety Report 24981369 (Version 1)
Quarter: 2025Q1

REPORT INFORMATION
  Report Type: Spontaneous
  Country: US (occurrence: None)
  Receive Date: 20250218
  Receipt Date: 20250218
  Transmission Date: 20250409
  Serious: Yes (Hospitalization)
  Sender: FDA-CTU
  Company Number: None

PATIENT
  Age: 61 Year
  Sex: Female
  Weight: 58.4 kg

DRUGS (3)
  1. FLUOROURACIL [Suspect]
     Active Substance: FLUOROURACIL
     Dates: end: 20241011
  2. LEUCOVORIN CALCIUM [Suspect]
     Active Substance: LEUCOVORIN CALCIUM
     Dates: end: 20241009
  3. ELOXATIN [Suspect]
     Active Substance: OXALIPLATIN
     Dates: end: 20241009

REACTIONS (10)
  - Dizziness [None]
  - Dizziness [None]
  - Dyspnoea exertional [None]
  - Fatigue [None]
  - Weight decreased [None]
  - Blood pressure decreased [None]
  - Electrolyte imbalance [None]
  - Blood sodium decreased [None]
  - Hyperglycaemia [None]
  - Failure to thrive [None]

NARRATIVE: CASE EVENT DATE: 20250213
